FAERS Safety Report 10075581 (Version 1)
Quarter: 2014Q2

REPORT INFORMATION
  Report Type: Spontaneous
  Country: IT (occurrence: IT)
  Receive Date: 20140414
  Receipt Date: 20140414
  Transmission Date: 20141212
  Serious: Yes (Hospitalization)
  Sender: FDA-Public Use
  Company Number: IT-BAYER-2014-052054

PATIENT
  Age: 66 Year
  Sex: Male

DRUGS (1)
  1. CARDIOASPIRIN [Suspect]
     Dosage: DAILY DOSE 200 MG
     Route: 048
     Dates: start: 20130101, end: 20140321

REACTIONS (4)
  - Erosive duodenitis [Unknown]
  - Melaena [Unknown]
  - Anaemia [Unknown]
  - Thrombocytopenia [Unknown]
